FAERS Safety Report 9475688 (Version 1)
Quarter: 2013Q3

REPORT INFORMATION
  Report Type: Spontaneous
  Country: BR (occurrence: BR)
  Receive Date: 20130826
  Receipt Date: 20130826
  Transmission Date: 20140515
  Serious: Yes (Hospitalization)
  Sender: FDA-Public Use
  Company Number: PHHY2013BR091535

PATIENT
  Age: 88 Year
  Sex: Male
  Weight: 82 kg

DRUGS (3)
  1. FORASEQ [Suspect]
     Indication: WHEEZING
     Dosage: 1 DF, 1 CAPSULE OF EACH TREATMENT DAILY
     Dates: end: 2012
  2. FORASEQ [Suspect]
     Indication: BRONCHITIS
  3. TEBONIN [Concomitant]
     Indication: VERTIGO
     Dosage: 1 DF, DAILY

REACTIONS (6)
  - Fall [Recovered/Resolved]
  - Spinal column injury [Unknown]
  - Spinal pain [Recovering/Resolving]
  - Dyspnoea [Unknown]
  - Wheezing [Unknown]
  - Cough [Unknown]
